FAERS Safety Report 9064153 (Version 1)
Quarter: 2013Q1

REPORT INFORMATION
  Report Type: Spontaneous
  Country: US (occurrence: US)
  Receive Date: 20130128
  Receipt Date: 20130128
  Transmission Date: 20140127
  Serious: No
  Sender: FDA-Public Use
  Company Number: US-MYLANLABS-2012S1024176

PATIENT
  Age: 68 Year
  Sex: Female
  Weight: 83.92 kg

DRUGS (3)
  1. CLONIDINE TRANSDERMAL SYSTEM [Suspect]
     Indication: HYPERTENSION
     Dosage: Q WEEK
     Route: 062
     Dates: start: 201206
  2. LABETALOL [Concomitant]
  3. LISINOPRIL [Concomitant]

REACTIONS (2)
  - Drug effect decreased [Not Recovered/Not Resolved]
  - Hypertension [Not Recovered/Not Resolved]
